FAERS Safety Report 6298224-4 (Version None)
Quarter: 2009Q3

REPORT INFORMATION
  Report Type: 
  Country: None (occurrence: None)
  Receive Date: 20090805
  Receipt Date: 20090729
  Transmission Date: 20100115
  Serious: Yes (Other)
  Sender: FDA-Public Use
  Company Number: US-AVENTIS-200915886US

PATIENT
  Sex: Male
  Weight: 68.04 kg

DRUGS (3)
  1. LANTUS [Suspect]
     Indication: TYPE 2 DIABETES MELLITUS
     Route: 058
     Dates: start: 20010601, end: 20090501
  2. LANTUS [Suspect]
     Route: 058
     Dates: start: 20090501
  3. OPTICLIK (INSULIN INJECTION PEN) [Suspect]
     Indication: TYPE 2 DIABETES MELLITUS
     Dosage: DOSE: UNK

REACTIONS (3)
  - BLOOD GLUCOSE FLUCTUATION [None]
  - THROAT CANCER [None]
  - THYROID NEOPLASM [None]
